FAERS Safety Report 22524394 (Version 1)
Quarter: 2023Q2

REPORT INFORMATION
  Report Type: Spontaneous
  Country: US (occurrence: US)
  Receive Date: 20230606
  Receipt Date: 20230606
  Transmission Date: 20230721
  Serious: Yes (Hospitalization)
  Sender: FDA-Public Use
  Company Number: US-drreddys-LIT/USA/23/0166259

PATIENT
  Age: 66 Year
  Sex: Male

DRUGS (3)
  1. SEVELAMER [Suspect]
     Active Substance: SEVELAMER
     Indication: End stage renal disease
  2. FLUDROCORTISONE [Suspect]
     Active Substance: FLUDROCORTISONE
     Indication: End stage renal disease
  3. MIDODRINE [Suspect]
     Active Substance: MIDODRINE
     Indication: End stage renal disease

REACTIONS (1)
  - Colitis ulcerative [Unknown]
